FAERS Safety Report 15132196 (Version 3)
Quarter: 2018Q3

REPORT INFORMATION
  Report Type: Spontaneous
  Country: US (occurrence: US)
  Receive Date: 20180711
  Receipt Date: 20180719
  Transmission Date: 20181010
  Serious: Yes (Other)
  Sender: FDA-Public Use
  Company Number: US-FRESENIUS KABI-FK201807572

PATIENT

DRUGS (1)
  1. SMOFLIPID [Suspect]
     Active Substance: FISH OIL\MEDIUM-CHAIN TRIGLYCERIDES\OLIVE OIL\SOYBEAN OIL
     Indication: PARENTERAL NUTRITION
     Dosage: 3G/KG/D
     Route: 065
     Dates: start: 201804

REACTIONS (6)
  - Thrombocytopenia neonatal [Unknown]
  - Deep vein thrombosis [Unknown]
  - Platelet transfusion [Unknown]
  - Off label use [Unknown]
  - Neonatal cholestasis [Unknown]
  - Blood bilirubin increased [Unknown]
